FAERS Safety Report 8956368 (Version 2)
Quarter: 2012Q4

REPORT INFORMATION
  Report Type: 
  Country: US (occurrence: US)
  Receive Date: 20121210
  Receipt Date: 20121221
  Transmission Date: 20130627
  Serious: Yes (Other)
  Sender: FDA-Public Use
  Company Number: US-BAYER-2012-126467

PATIENT
  Age: 30 Year
  Sex: Female

DRUGS (8)
  1. YAZ [Suspect]
  2. OCELLA [Suspect]
  3. DIAZEPAM [Concomitant]
     Dosage: 5 mg, UNK
     Dates: start: 20101011
  4. OXYCODONE [Concomitant]
  5. ACETAMINOPHEN [Concomitant]
  6. SODIUM TETRADECYL SULFATE [Concomitant]
     Dosage: 5 to 8 mls
  7. SODIUM TETRADECYL SULFATE [Concomitant]
     Dosage: 3 to 8 mls
  8. ANTIVARICOSE THERAPY [Concomitant]
     Dosage: 2 to 3 mls

REACTIONS (1)
  - Deep vein thrombosis [Recovering/Resolving]
